FAERS Safety Report 6888044-1 (Version None)
Quarter: 2010Q3

REPORT INFORMATION
  Report Type: 
  Country: None (occurrence: None)
  Receive Date: 20100730
  Receipt Date: 20100723
  Transmission Date: 20110219
  Serious: Yes (Other)
  Sender: FDA-Public Use
  Company Number: B0667825A

PATIENT
  Sex: Male

DRUGS (1)
  1. CLAVAMOX [Suspect]
     Indication: TONSILLITIS
     Route: 048
     Dates: start: 20091101

REACTIONS (4)
  - AGITATION [None]
  - DYSPNOEA [None]
  - RASH [None]
  - TACHYCARDIA [None]
